FAERS Safety Report 25670892 (Version 1)
Quarter: 2025Q3

REPORT INFORMATION
  Report Type: Spontaneous
  Country: CN (occurrence: CN)
  Receive Date: 20250812
  Receipt Date: 20250812
  Transmission Date: 20251021
  Serious: Yes (Hospitalization, Other)
  Sender: ASTELLAS
  Company Number: CN-ASTELLAS-2025-AER-043532

PATIENT
  Age: 25 Year
  Sex: Female

DRUGS (6)
  1. TACROLIMUS [Suspect]
     Active Substance: TACROLIMUS
     Indication: Renal transplant
     Route: 065
     Dates: start: 202006, end: 2020
  2. TACROLIMUS [Suspect]
     Active Substance: TACROLIMUS
     Dosage: REDUCED
     Route: 065
     Dates: start: 2020
  3. MYCOPHENOLATE MOFETIL [Concomitant]
     Active Substance: MYCOPHENOLATE MOFETIL
     Indication: Renal transplant
     Route: 065
     Dates: start: 202006, end: 202008
  4. PREDNISONE [Concomitant]
     Active Substance: PREDNISONE
     Indication: Renal transplant
     Route: 065
     Dates: start: 202006, end: 202008
  5. PREDNISONE [Concomitant]
     Active Substance: PREDNISONE
     Dosage: REDUCED
     Route: 065
     Dates: start: 202008, end: 2020
  6. PREDNISONE [Concomitant]
     Active Substance: PREDNISONE
     Route: 065
     Dates: start: 2020

REACTIONS (6)
  - Ureteritis [Recovered/Resolved]
  - BK virus infection [Recovered/Resolved]
  - Viruria [Recovered/Resolved]
  - Ureteric stenosis [Recovered/Resolved]
  - Hydronephrosis [Recovered/Resolved]
  - JC virus infection [Recovering/Resolving]

NARRATIVE: CASE EVENT DATE: 20200801
